FAERS Safety Report 7749843-7 (Version None)
Quarter: 2011Q3

REPORT INFORMATION
  Report Type: 
  Country: None (occurrence: None)
  Receive Date: 20110914
  Receipt Date: 20110902
  Transmission Date: 20111222
  Serious: Yes (Hospitalization)
  Sender: FDA-Public Use
  Company Number: FR-NOVOPROD-334498

PATIENT

DRUGS (3)
  1. VICTOZA [Suspect]
     Indication: DIABETES MELLITUS
     Dosage: 0.6 MG, QD
     Route: 058
     Dates: start: 20110726, end: 20110728
  2. PANTOPRAZOLE [Concomitant]
     Dosage: 1 PILL EVERY NIGHT
  3. METFORMIN HCL [Concomitant]

REACTIONS (3)
  - TREMOR [None]
  - ABDOMINAL PAIN UPPER [None]
  - NAUSEA [None]
